FAERS Safety Report 18181311 (Version 2)
Quarter: 2020Q3

REPORT INFORMATION
  Report Type: Spontaneous
  Country: FR (occurrence: FR)
  Receive Date: 20200821
  Receipt Date: 20200901
  Transmission Date: 20201103
  Serious: Yes (Hospitalization, Other)
  Sender: FDA-Public Use
  Company Number: FR-MYLANLABS-2020M1071919

PATIENT
  Sex: Female
  Weight: 45 kg

DRUGS (6)
  1. CLARITHROMYCIN. [Suspect]
     Active Substance: CLARITHROMYCIN
     Indication: PRODUCT USED FOR UNKNOWN INDICATION
     Dosage: UNK
     Dates: start: 201905, end: 201912
  2. ISENTRESS [Suspect]
     Active Substance: RALTEGRAVIR POTASSIUM
     Dosage: 800 MILLIGRAM, QD (400 MG, 2 TABLETS DAILY)
     Route: 048
     Dates: start: 20190313
  3. RIFABUTIN. [Suspect]
     Active Substance: RIFABUTIN
     Indication: PRODUCT USED FOR UNKNOWN INDICATION
     Dosage: UNK
     Dates: start: 20190306
  4. ISENTRESS [Suspect]
     Active Substance: RALTEGRAVIR POTASSIUM
     Dosage: UNK
     Route: 048
     Dates: start: 201912
  5. ISENTRESS [Suspect]
     Active Substance: RALTEGRAVIR POTASSIUM
     Indication: PRODUCT USED FOR UNKNOWN INDICATION
     Dosage: 800 MILLIGRAM, QD(400 MG BID, 2 TABLETS DAILY)
     Route: 048
     Dates: start: 201902
  6. BACTRIM [Suspect]
     Active Substance: SULFAMETHOXAZOLE\TRIMETHOPRIM
     Indication: PRODUCT USED FOR UNKNOWN INDICATION
     Dosage: UNK

REACTIONS (12)
  - Hepatitis [Unknown]
  - Cholestasis [Recovering/Resolving]
  - Congestive cardiomyopathy [Unknown]
  - Disseminated mycobacterium avium complex infection [Unknown]
  - Bacterial infection [Unknown]
  - Salmonella sepsis [Unknown]
  - Malnutrition [Unknown]
  - Gastritis haemorrhagic [Unknown]
  - Gynaecological chlamydia infection [Unknown]
  - Adrenal insufficiency [Unknown]
  - Cytopenia [Recovering/Resolving]
  - Drug resistance [Unknown]

NARRATIVE: CASE EVENT DATE: 201902
